FAERS Safety Report 24289880 (Version 2)
Quarter: 2024Q4

REPORT INFORMATION
  Report Type: Report from Study
  Country: IT (occurrence: IT)
  Receive Date: 20240906
  Receipt Date: 20241016
  Transmission Date: 20250115
  Serious: Yes (Other)
  Sender: CSL BEHRING
  Company Number: IT-IGSA-BIG0030272

PATIENT
  Age: 54 Year
  Sex: Male

DRUGS (5)
  1. HUMAN IMMUNOGLOBULIN G [Suspect]
     Active Substance: HUMAN IMMUNOGLOBULIN G
     Indication: Evans syndrome
     Route: 042
  2. HUMAN IMMUNOGLOBULIN G [Suspect]
     Active Substance: HUMAN IMMUNOGLOBULIN G
     Indication: Antiphospholipid syndrome
  3. HUMAN IMMUNOGLOBULIN G [Suspect]
     Active Substance: HUMAN IMMUNOGLOBULIN G
     Indication: Off label use
  4. DANAZOL [Suspect]
     Active Substance: DANAZOL
  5. ELTROMBOPAG [Suspect]
     Active Substance: ELTROMBOPAG

REACTIONS (3)
  - Cerebral venous thrombosis [Unknown]
  - Acute myocardial infarction [Unknown]
  - Off label use [Unknown]
